FAERS Safety Report 15338851 (Version 1)
Quarter: 2018Q3

REPORT INFORMATION
  Report Type: Spontaneous
  Country: JP (occurrence: JP)
  Receive Date: 20180831
  Receipt Date: 20180831
  Transmission Date: 20181010
  Serious: Yes (Disabling)
  Sender: FDA-Public Use
  Company Number: JP-JNJFOC-20180835859

PATIENT
  Sex: Male

DRUGS (2)
  1. IMPROMEN [Suspect]
     Active Substance: BROMPERIDOL
     Indication: PRODUCT USED FOR UNKNOWN INDICATION
     Route: 048
  2. INVEGA [Suspect]
     Active Substance: PALIPERIDONE
     Indication: PRODUCT USED FOR UNKNOWN INDICATION
     Route: 048
     Dates: start: 201601

REACTIONS (1)
  - Eyelid function disorder [Not Recovered/Not Resolved]
